FAERS Safety Report 16585607 (Version 1)
Quarter: 2019Q3

REPORT INFORMATION
  Report Type: Spontaneous
  Country: NZ (occurrence: NZ)
  Receive Date: 20190717
  Receipt Date: 20190717
  Transmission Date: 20191004
  Serious: Yes (Hospitalization)
  Sender: FDA-Public Use
  Company Number: PHHY2019NZ160656

PATIENT

DRUGS (3)
  1. BETAMETHASONE. [Suspect]
     Active Substance: BETAMETHASONE
     Indication: FOETAL EXPOSURE DURING PREGNANCY
     Dosage: MOTHERNAL DOSE:11.4 MG, 24 HOURS APART BEFORE DELIVERY
     Route: 064
  2. DEXTROSE. [Suspect]
     Active Substance: DEXTROSE
     Indication: FOETAL EXPOSURE DURING PREGNANCY
     Route: 064
  3. INSULIN [Suspect]
     Active Substance: INSULIN NOS
     Indication: FOETAL EXPOSURE DURING PREGNANCY
     Route: 064

REACTIONS (3)
  - Respiratory disorder neonatal [Unknown]
  - Foetal exposure during pregnancy [Unknown]
  - Arrhythmia [Unknown]
